FAERS Safety Report 7326843-2 (Version None)
Quarter: 2011Q1

REPORT INFORMATION
  Report Type: 
  Country: None (occurrence: None)
  Receive Date: 20110222
  Receipt Date: 20110215
  Transmission Date: 20110831
  Serious: Yes (Other)
  Sender: FDA-Public Use
  Company Number: 2011SP007146

PATIENT
  Age: 22 Year
  Sex: Female
  Weight: 92.9874 kg

DRUGS (1)
  1. IMPLANON [Suspect]
     Indication: CONTRACEPTION
     Dates: start: 20110125

REACTIONS (3)
  - BLINDNESS [None]
  - VISION BLURRED [None]
  - ALOPECIA [None]
